FAERS Safety Report 8404567-8 (Version None)
Quarter: 2012Q2

REPORT INFORMATION
  Report Type: 
  Country: None (occurrence: None)
  Receive Date: 20120601
  Receipt Date: 20120522
  Transmission Date: 20120825
  Serious: Yes (Hospitalization)
  Sender: FDA-Public Use
  Company Number: CH-BAXTER-2012BAX006365

PATIENT
  Sex: Female
  Weight: 87.7 kg

DRUGS (8)
  1. PREDNISOLONE [Suspect]
     Indication: DIFFUSE LARGE B-CELL LYMPHOMA
     Route: 048
     Dates: start: 20111112
  2. VINCRISTINE [Suspect]
     Indication: DIFFUSE LARGE B-CELL LYMPHOMA
     Route: 042
     Dates: start: 20111111
  3. CYCLOPHOSPHAMIDE [Suspect]
     Indication: DIFFUSE LARGE B-CELL LYMPHOMA
     Route: 042
     Dates: start: 20111111
  4. CYCLOPHOSPHAMIDE [Suspect]
     Dates: start: 20111111
  5. RITUXIMAB [Suspect]
     Indication: DIFFUSE LARGE B-CELL LYMPHOMA
     Route: 042
     Dates: start: 20111111
  6. RITUXIMAB [Suspect]
     Dosage: CONCENTRATION 1/MG/ML
     Dates: start: 20111111
  7. DOXORUBICIN HCL [Suspect]
     Indication: DIFFUSE LARGE B-CELL LYMPHOMA
     Route: 042
     Dates: start: 20111111
  8. DOXORUBICIN HCL [Suspect]
     Route: 042
     Dates: start: 20111102

REACTIONS (1)
  - CHOLECYSTITIS [None]
